FAERS Safety Report 23127969 (Version 4)
Quarter: 2024Q1

REPORT INFORMATION
  Report Type: Report from Study
  Country: US (occurrence: US)
  Receive Date: 20231031
  Receipt Date: 20240124
  Transmission Date: 20240410
  Serious: Yes (Other)
  Sender: FDA-Public Use
  Company Number: US-ABBVIE-5444021

PATIENT
  Sex: Male
  Weight: 72 kg

DRUGS (2)
  1. VENCLEXTA [Suspect]
     Active Substance: VENETOCLAX
     Indication: Chronic lymphocytic leukaemia
     Dosage: LAST ADMIN DATE- 2023  DURATION TEXT: DAY 1 AND DAY 2 FORM STRENGTH: 50 MILLIGRAM
     Route: 048
     Dates: start: 20230912
  2. VENCLEXTA [Suspect]
     Active Substance: VENETOCLAX
     Indication: Chronic lymphocytic leukaemia
     Dosage: FORM STRENGTH: 50 MILLIGRAM ,DURATION TEXT: DAY 1 AND DAY 2
     Route: 048

REACTIONS (2)
  - Bursitis [Unknown]
  - Dizziness [Recovered/Resolved]

NARRATIVE: CASE EVENT DATE: 20230101
